FAERS Safety Report 5836350-1 (Version None)
Quarter: 2008Q3

REPORT INFORMATION
  Report Type: 
  Country: None (occurrence: None)
  Receive Date: 20080807
  Receipt Date: 20080729
  Transmission Date: 20090109
  Serious: Yes (Hospitalization, Other)
  Sender: FDA-Public Use
  Company Number: FR-JNJFOC-20080601179

PATIENT
  Sex: Male
  Weight: 56 kg

DRUGS (6)
  1. RISPERDAL [Suspect]
     Indication: ABNORMAL BEHAVIOUR
     Route: 048
  2. RISPERDAL [Suspect]
     Indication: PSYCHOTIC DISORDER
     Route: 048
  3. TERCIAN [Concomitant]
     Indication: ANXIETY
     Route: 048
  4. XANAX [Concomitant]
     Indication: ANXIETY
     Route: 048
  5. PRAZEPAM [Concomitant]
     Indication: ANXIETY
     Route: 048
  6. IMOVANE [Concomitant]
     Indication: INSOMNIA
     Route: 048

REACTIONS (4)
  - BLOOD CREATINE PHOSPHOKINASE INCREASED [None]
  - BODY TEMPERATURE INCREASED [None]
  - NEUTROPENIA [None]
  - THROMBOCYTOPENIA [None]
